FAERS Safety Report 6134293-X (Version None)
Quarter: 2009Q1

REPORT INFORMATION
  Report Type: 
  Country: None (occurrence: None)
  Receive Date: 20090325
  Receipt Date: 20090310
  Transmission Date: 20090719
  Serious: Yes (Hospitalization)
  Sender: FDA-Public Use
  Company Number: DSJ-2009-03085

PATIENT
  Age: 60 Year
  Sex: Male
  Weight: 53 kg

DRUGS (11)
  1. OLMETEC (OLMESARTAN MEDOXOMIL) (TABLET) (OLMESAR MEDOXOMIL) [Suspect]
     Indication: ESSENTIAL HYPERTENSION
     Dosage: 20 MG (20 MG,1 IN 1 D), PER ORAL;  10 MG  (10 MG, 1 IN 1 D), PER ORAL
     Route: 048
     Dates: start: 20070210, end: 20070531
  2. OLMETEC (OLMESARTAN MEDOXOMIL) (TABLET) (OLMESAR MEDOXOMIL) [Suspect]
     Indication: ESSENTIAL HYPERTENSION
     Dosage: 20 MG (20 MG,1 IN 1 D), PER ORAL;  10 MG  (10 MG, 1 IN 1 D), PER ORAL
     Route: 048
     Dates: start: 20070601, end: 20070907
  3. OLMETEC (OLMESARTAN MEDOXOMIL) (TABLET) (OLMESAR MEDOXOMIL) [Suspect]
     Indication: ESSENTIAL HYPERTENSION
     Dosage: 20 MG (20 MG,1 IN 1 D), PER ORAL;  10 MG  (10 MG, 1 IN 1 D), PER ORAL
     Route: 048
     Dates: start: 20080307, end: 20080501
  4. OLMETEC (OLMESARTAN MEDOXOMIL) (TABLET) (OLMESAR MEDOXOMIL) [Suspect]
     Indication: ESSENTIAL HYPERTENSION
     Dosage: 20 MG (20 MG,1 IN 1 D), PER ORAL;  10 MG  (10 MG, 1 IN 1 D), PER ORAL
     Route: 048
     Dates: start: 20080502, end: 20080614
  5. OLMETEC (OLMESARTAN MEDOXOMIL) (TABLET) (OLMESAR MEDOXOMIL) [Suspect]
     Indication: ESSENTIAL HYPERTENSION
     Dosage: 20 MG (20 MG,1 IN 1 D), PER ORAL;  10 MG  (10 MG, 1 IN 1 D), PER ORAL
     Route: 048
     Dates: start: 20080726
  6. DIOVAN [Concomitant]
  7. OMEPRAL (OMEPRAZOLE) (OMEPRAZOLE) [Concomitant]
  8. KAMAC (MAGNESIUM OXIDE) (MAGNESIUM OXIDE) [Concomitant]
  9. ARTIST (CARVEDILOL)(CARVEDILOL) [Concomitant]
  10. MUCOSTA (REBAMIPIDE) (REBAMIPIDE) [Concomitant]
  11. ALLORIN (ALLOPURINOL) (ALLOPURINOL) [Concomitant]

REACTIONS (2)
  - ANOREXIA [None]
  - CEREBRAL INFARCTION [None]
